FAERS Safety Report 8895722 (Version 1)
Quarter: 2012Q4

REPORT INFORMATION
  Report Type: 
  Country: JP (occurrence: JP)
  Receive Date: 20121107
  Receipt Date: 20121107
  Transmission Date: 20130627
  Serious: Yes (Hospitalization)
  Sender: FDA-Public Use
  Company Number: JP-AMGEN-JPNCT2012048475

PATIENT
  Age: 68 Year
  Sex: Female
  Weight: 53 kg

DRUGS (25)
  1. DARBEPOETIN ALFA [Suspect]
     Indication: NEPHROGENIC ANAEMIA
     Dosage: 30 mug, q2wk
     Route: 058
     Dates: start: 20110804, end: 20110818
  2. DARBEPOETIN ALFA [Suspect]
     Dosage: 60 mug, q2wk
     Route: 058
     Dates: start: 20110901, end: 20111026
  3. DARBEPOETIN ALFA [Suspect]
     Dosage: 60 mug, q4wk
     Route: 058
     Dates: start: 20111124, end: 20120118
  4. ENDOXAN [Concomitant]
     Indication: NEPHROTIC SYNDROME
     Dosage: UNK
     Route: 041
  5. SEISHOKU [Concomitant]
     Indication: NEPHROTIC SYNDROME
     Dosage: UNK
     Route: 041
  6. MICOMBI COMBINATION [Concomitant]
     Dosage: Dosage is uncertain.
     Route: 048
  7. BAYASPIRIN [Concomitant]
     Dosage: Dosage is uncertain.
     Route: 048
  8. PARIET [Concomitant]
     Dosage: Dosage is uncertain.
     Route: 048
  9. CONIEL [Concomitant]
     Indication: NEPHROTIC SYNDROME
     Dosage: Dosage is uncertain.
     Route: 048
  10. FUROSEMIDE [Concomitant]
     Indication: NEPHROTIC SYNDROME
     Dosage: Dosage is uncertain.
     Route: 048
  11. WASSER V [Concomitant]
     Indication: PROPHYLAXIS
     Dosage: Dosage is uncertain.
     Route: 048
  12. ALESION [Concomitant]
     Dosage: Dosage is uncertain.
     Route: 048
  13. CARDENALIN [Concomitant]
     Indication: NEPHROTIC SYNDROME
     Dosage: UNK
     Route: 048
  14. RINDERON-VG [Concomitant]
     Dosage: Dosage is uncertain.
     Route: 061
  15. CELESTANA [Concomitant]
     Dosage: Dosage is uncertain.
     Route: 048
  16. REBAMIPIDE [Concomitant]
     Dosage: Dosage is uncertain.
     Route: 048
  17. THYRADIN S [Concomitant]
     Dosage: Dosage is uncertain.
     Route: 048
  18. FLUITRAN [Concomitant]
     Indication: NEPHROTIC SYNDROME
     Dosage: Dosage is uncertain.
     Route: 048
  19. PRECIPITATED CALCIUM CARBONATE [Concomitant]
     Dosage: Dosage is uncertain.
     Route: 048
  20. ARTIST [Concomitant]
     Indication: NEPHROTIC SYNDROME
     Dosage: Dosage is uncertain.
     Route: 048
  21. MICARDIS [Concomitant]
     Indication: NEPHROTIC SYNDROME
     Dosage: Dosage is uncertain.
     Route: 048
  22. ALBUMINAR [Concomitant]
     Dosage: Dosage is uncertain.
     Route: 065
  23. WARFARIN [Concomitant]
     Indication: NEPHROTIC SYNDROME
     Dosage: Dosage is uncertain.
     Route: 048
  24. BONOTEO [Concomitant]
     Dosage: Dosage is uncertain.
     Route: 048
  25. GLAKAY [Concomitant]
     Indication: PREOPERATIVE CARE
     Dosage: Dosage is uncertain.
     Route: 048

REACTIONS (3)
  - Ascites [Unknown]
  - Renal impairment [Recovering/Resolving]
  - Nasopharyngitis [Recovered/Resolved]
